FAERS Safety Report 6152128-6 (Version None)
Quarter: 2009Q2

REPORT INFORMATION
  Report Type: 
  Country: None (occurrence: None)
  Receive Date: 20090410
  Receipt Date: 20090409
  Transmission Date: 20091009
  Serious: Yes (Hospitalization)
  Sender: FDA-Public Use
  Company Number: TW-PFIZER INC-2008055941

PATIENT

DRUGS (4)
  1. TOLTERODINE TARTRATE [Suspect]
     Indication: HYPERTONIC BLADDER
     Dosage: QD:EVERYDAY
     Route: 048
     Dates: start: 20080124, end: 20080424
  2. WARFARIN SODIUM [Concomitant]
     Route: 048
     Dates: start: 20080228
  3. DIGOXIN [Concomitant]
     Route: 048
     Dates: start: 20080228, end: 20080327
  4. AMLODIPINE [Concomitant]
     Route: 048
     Dates: start: 20080228

REACTIONS (1)
  - HERPES ZOSTER [None]
